FAERS Safety Report 5971017-0 (Version None)
Quarter: 2008Q4

REPORT INFORMATION
  Report Type: 
  Country: None (occurrence: None)
  Receive Date: 20081128
  Receipt Date: 20081124
  Transmission Date: 20090506
  Serious: Yes (Other)
  Sender: FDA-Public Use
  Company Number: BE-RANBAXY-2008RR-19312

PATIENT
  Age: 72 Year
  Sex: Female

DRUGS (3)
  1. OLANZAPINE [Suspect]
     Indication: MAJOR DEPRESSION
     Dosage: 10 MG, UNK
  2. MADOPAR 250 COMPRIMATE [Suspect]
     Indication: MUSCLE RIGIDITY
     Dosage: 375 MG, UNK
  3. ARIPIPRAZOLE [Concomitant]
     Indication: DELUSION
     Dosage: 10 MG, UNK

REACTIONS (3)
  - MUSCULAR WEAKNESS [None]
  - NEUROMYOPATHY [None]
  - PARKINSONISM [None]
